FAERS Safety Report 7215766-5 (Version None)
Quarter: 2011Q1

REPORT INFORMATION
  Report Type: 
  Country: None (occurrence: None)
  Receive Date: 20110107
  Receipt Date: 20101231
  Transmission Date: 20110831
  Serious: Yes (Death, Other)
  Sender: FDA-Public Use
  Company Number: US-PFIZER INC-2011000343

PATIENT
  Age: 21 Year
  Sex: Female

DRUGS (8)
  1. PROCHLORPERAZINE [Suspect]
     Route: 048
  2. DICYCLOMINE [Suspect]
     Route: 048
  3. METHADONE [Suspect]
     Route: 048
  4. ACETAMINOPHEN AND HYDROCODONE BITARTRATE [Suspect]
     Route: 048
  5. ESOMEPRAZOLE [Suspect]
     Route: 048
  6. ALPRAZOLAM [Suspect]
     Route: 048
  7. HYDROCODONE [Suspect]
     Route: 048
  8. LAMOTRIGINE [Suspect]
     Route: 048

REACTIONS (4)
  - RESPIRATORY ARREST [None]
  - CARDIAC ARREST [None]
  - COMPLETED SUICIDE [None]
  - INTENTIONAL DRUG MISUSE [None]
